FAERS Safety Report 5255090-3 (Version None)
Quarter: 2007Q1

REPORT INFORMATION
  Report Type: 
  Country: None (occurrence: None)
  Receive Date: 20070228
  Receipt Date: 20070215
  Transmission Date: 20070707
  Serious: Yes (Life-Threatening)
  Sender: FDA-Public Use
  Company Number: 2007US000350

PATIENT
  Age: 25 Year

DRUGS (3)
  1. ADENOCARD [Suspect]
     Indication: TACHYCARDIA
  2. TRANGOREX (AMIODARONE HYDROCHLORIDE) TABLET [Suspect]
     Indication: TACHYCARDIA
     Dosage: 200 MG
  3. VERAPAMIL [Suspect]
     Indication: TACHYCARDIA
     Dosage: IV NOS
     Route: 042

REACTIONS (1)
  - HEPATITIS [None]
